FAERS Safety Report 8612851 (Version 3)
Quarter: 2012Q4

REPORT INFORMATION
  Report Type: 
  Country: US (occurrence: US)
  Receive Date: 20120613
  Receipt Date: 20121016
  Transmission Date: 20130627
  Serious: Yes (Other)
  Sender: FDA-Public Use
  Company Number: US-ALEXION-A201201138

PATIENT
  Age: 5 Year
  Sex: Male

DRUGS (25)
  1. SOLIRIS 300MG [Suspect]
     Indication: HAEMOLYTIC URAEMIC SYNDROME
     Dosage: 300 mg, UNK
     Route: 042
     Dates: end: 20120907
  2. COZAAR [Concomitant]
     Dosage: 12.5 mg, bid
  3. RENVELA [Concomitant]
     Dosage: 1 pkg w/meals, 1 tsp PM w/feedings
  4. ENALAPRIL [Concomitant]
     Dosage: 7.5 mg, bid
     Route: 048
  5. AMLODIPINE [Concomitant]
     Dosage: 5 mg, bid
  6. AMLODIPINE [Concomitant]
     Dosage: 2.5 mg MWF
  7. COREG [Concomitant]
     Dosage: 3.125mg/2ml, bid
  8. PRILOSEC [Concomitant]
     Dosage: 10 mg qd (5ml)
     Route: 048
  9. FERROUS SULFATE [Concomitant]
     Dosage: 3 mls (30 mg), qd
  10. LEVETIRACETAM [Concomitant]
     Dosage: 125 mg, qd
  11. FOLIC ACID [Concomitant]
     Dosage: 1 tab qd (1mg/5ml)
  12. POLY-VI-SOL [Concomitant]
     Dosage: UNK, qd
  13. GENTAK [Concomitant]
     Dosage: To exit site, qd
     Route: 061
  14. CLONIDINE [Concomitant]
     Dosage: 0.2mg/ml susp 0.5-1ml for SBP}140
  15. NIFEDIPINE [Concomitant]
     Dosage: (4mg/ml) 1 ml for SBP.115, prn
  16. HYDRALAZINE HCL [Concomitant]
     Dosage: 3mg/1ml for SBP}125, prn
  17. MIRALAX [Concomitant]
     Dosage: 1capful, qd prn
  18. DIASTAT [Concomitant]
     Indication: CONVULSION
     Dosage: 4ml by 2ml for seizure lasting.3 min, prn
     Route: 054
  19. EMLA [Concomitant]
     Dosage: 45 gm tube (apply to infusaport site 2 hrs prior to use)
     Route: 061
  20. KAYEXALATE [Concomitant]
     Dosage: 9 mg on non-dialysis days, prn
  21. BENADRYL [Concomitant]
     Dosage: 12.5 mg, q 4 hrs prn
  22. ZOFRAN [Concomitant]
     Dosage: 2 mg, q 4 hrs prn
  23. ZEMPLAR [Concomitant]
     Dosage: 2 mcg, MWF
  24. EPOGEN [Concomitant]
     Dosage: 3200 units MWF
  25. AMOXICILLIN [Suspect]
     Indication: PROPHYLAXIS

REACTIONS (2)
  - Bacillus infection [Recovered/Resolved]
  - Device related infection [Recovered/Resolved]
